FAERS Safety Report 18338059 (Version 1)
Quarter: 2020Q4

REPORT INFORMATION
  Report Type: Spontaneous
  Country: GB (occurrence: GB)
  Receive Date: 20201002
  Receipt Date: 20201002
  Transmission Date: 20210113
  Serious: Yes (Hospitalization, Other)
  Sender: FDA-Public Use
  Company Number: GB-TEVA-2020-GB-1832516

PATIENT
  Age: 54 Year
  Sex: Female
  Weight: 90.09 kg

DRUGS (10)
  1. ACETYLSALICYLIC ACID [Concomitant]
     Active Substance: ASPIRIN
     Route: 048
     Dates: start: 20200625
  2. PREDNISOLONE. [Concomitant]
     Active Substance: PREDNISOLONE
     Dosage: TAKE AS PER ADVICE FROM CONSULTANT HEAMATOLOGIST (20MG FROM MAY 2020)
     Route: 048
     Dates: start: 20200611
  3. COTRIMOXAZOLE [Concomitant]
     Active Substance: SULFAMETHOXAZOLE\TRIMETHOPRIM
     Route: 048
     Dates: start: 20200814
  4. METOCLOPRAMIDE. [Concomitant]
     Active Substance: METOCLOPRAMIDE
     Route: 048
     Dates: start: 20200821
  5. LANSOPRAZOLE. [Suspect]
     Active Substance: LANSOPRAZOLE
     Indication: OROPHARYNGEAL PAIN
     Route: 048
  6. ALENDRONIC ACID [Concomitant]
     Active Substance: ALENDRONIC ACID
     Route: 048
     Dates: start: 20200611
  7. PREDNISOLONE. [Concomitant]
     Active Substance: PREDNISOLONE
     Dosage: TAKE AS PER ADVICE FROM CONSULTANT HEAMATOLOGIST (40MG FROM JUNE 2020)
     Route: 048
     Dates: start: 20200625
  8. MICONAZOLE. [Concomitant]
     Active Substance: MICONAZOLE
     Dosage: CONTINUE FOR 10 DAYS AFTER ALL RASHES HAVE DISAPPEARED
     Route: 061
     Dates: start: 20200709
  9. COTRIMOXAZOLE [Concomitant]
     Active Substance: SULFAMETHOXAZOLE\TRIMETHOPRIM
     Route: 048
     Dates: start: 20200819
  10. FOLIC ACID. [Concomitant]
     Active Substance: FOLIC ACID
     Route: 048
     Dates: start: 20200611

REACTIONS (2)
  - Hyponatraemic seizure [Unknown]
  - Hyponatraemia [Recovering/Resolving]

NARRATIVE: CASE EVENT DATE: 20200824
